FAERS Safety Report 11094227 (Version 2)
Quarter: 2015Q2

REPORT INFORMATION
  Report Type: Spontaneous
  Country: US (occurrence: US)
  Receive Date: 20150506
  Receipt Date: 20150513
  Transmission Date: 20150821
  Serious: No
  Sender: FDA-Public Use
  Company Number: US-PFIZER INC-2015150409

PATIENT
  Age: 64 Year
  Sex: Male
  Weight: 91 kg

DRUGS (11)
  1. CELECOXIB. [Suspect]
     Active Substance: CELECOXIB
     Indication: OSTEOARTHRITIS
  2. HYDROCODONE [Suspect]
     Active Substance: HYDROCODONE
     Indication: BACK PAIN
  3. CELEBREX [Suspect]
     Active Substance: CELECOXIB
     Indication: PLANTAR FASCIITIS
     Dosage: 100 MG, UNK
     Route: 048
  4. CELEBREX [Suspect]
     Active Substance: CELECOXIB
     Indication: OSTEOARTHRITIS
     Dosage: 200 MG, 1X/DAY
     Route: 048
  5. CELECOXIB. [Suspect]
     Active Substance: CELECOXIB
     Indication: TRIGGER FINGER
  6. CELECOXIB. [Suspect]
     Active Substance: CELECOXIB
     Indication: PLANTAR FASCIITIS
     Dosage: 200 MG, UNK
     Dates: start: 20150201, end: 201504
  7. HYDROCODONE [Suspect]
     Active Substance: HYDROCODONE
     Indication: PAIN
     Dosage: 10/325, FOUR A DAY
  8. CELEBREX [Suspect]
     Active Substance: CELECOXIB
     Indication: TRIGGER FINGER
  9. BENICAR [Concomitant]
     Active Substance: OLMESARTAN MEDOXOMIL
     Dosage: UNK, 1X/DAY
  10. NEXIUM [Concomitant]
     Active Substance: ESOMEPRAZOLE MAGNESIUM
     Dosage: 100 MG, UNK
  11. CRESTOR [Concomitant]
     Active Substance: ROSUVASTATIN CALCIUM
     Dosage: UNK, 1X/DAY

REACTIONS (5)
  - Peripheral swelling [Recovered/Resolved]
  - Product substitution issue [Unknown]
  - Pain in extremity [Recovered/Resolved]
  - Drug ineffective [Unknown]
  - Arthralgia [Recovered/Resolved]

NARRATIVE: CASE EVENT DATE: 2015
